FAERS Safety Report 11999695 (Version 1)
Quarter: 2016Q1

REPORT INFORMATION
  Report Type: Spontaneous
  Country: US (occurrence: US)
  Receive Date: 20160204
  Receipt Date: 20160204
  Transmission Date: 20160526
  Serious: Yes (Other)
  Sender: FDA-Public Use
  Company Number: US-JNJFOC-20160123494

PATIENT
  Age: 59 Year
  Sex: Female
  Weight: 113.4 kg

DRUGS (1)
  1. TYLENOL EXTRA STRENGTH [Suspect]
     Active Substance: ACETAMINOPHEN
     Indication: PROCEDURAL PAIN
     Dosage: DOSE: 1 TABLET, JUST ONCE
     Route: 048
     Dates: start: 20160113, end: 20160113

REACTIONS (3)
  - Choking [Recovered/Resolved]
  - Foreign body [Recovered/Resolved]
  - Product difficult to swallow [Unknown]

NARRATIVE: CASE EVENT DATE: 20160113
